FAERS Safety Report 21158258 (Version 1)
Quarter: 2022Q3

REPORT INFORMATION
  Report Type: Report from Study
  Country: CN (occurrence: CN)
  Receive Date: 20220801
  Receipt Date: 20220801
  Transmission Date: 20221027
  Serious: Yes (Death, Other)
  Sender: FDA-Public Use
  Company Number: CN-BRISTOL-MYERS SQUIBB COMPANY-2022-083014

PATIENT
  Age: 43 Year
  Sex: Male

DRUGS (1)
  1. OPDIVO [Suspect]
     Active Substance: NIVOLUMAB
     Indication: Gastric cancer
     Dosage: FREQUENCY: Q3W
     Route: 041
     Dates: start: 20220501

REACTIONS (2)
  - Cardio-respiratory arrest [Fatal]
  - Off label use [Unknown]
